FAERS Safety Report 8963347 (Version 1)
Quarter: 2012Q4

REPORT INFORMATION
  Report Type: Report from Study
  Country: DE (occurrence: DE)
  Receive Date: 20121214
  Receipt Date: 20121214
  Transmission Date: 20130627
  Serious: Yes (Hospitalization)
  Sender: FDA-Public Use
  Company Number: DE-ROCHE-1165362

PATIENT
  Sex: Female
  Weight: 50 kg

DRUGS (4)
  1. BEVACIZUMAB [Suspect]
     Indication: COLORECTAL CANCER METASTATIC
     Route: 042
  2. 5-FLUOROURACIL [Concomitant]
     Route: 042
  3. FOLINIC ACID [Concomitant]
     Route: 042
  4. OXALIPLATIN [Concomitant]
     Route: 042

REACTIONS (3)
  - Local swelling [Not Recovered/Not Resolved]
  - Eye swelling [Not Recovered/Not Resolved]
  - Thrombosis [Not Recovered/Not Resolved]
